FAERS Safety Report 8499525-1 (Version None)
Quarter: 2012Q2

REPORT INFORMATION
  Report Type: 
  Country: None (occurrence: None)
  Receive Date: 20120629
  Receipt Date: 20120619
  Transmission Date: 20120825
  Serious: Yes (Other)
  Sender: FDA-Public Use
  Company Number: FK201201731

PATIENT
  Age: 37 Year
  Sex: Male

DRUGS (2)
  1. CARBAMAZEPINE [Concomitant]
  2. HALOPERIDOL [Suspect]
     Indication: MANIA
     Dosage: 7.5 MG TWICE DAILY

REACTIONS (1)
  - OBSESSIVE-COMPULSIVE DISORDER [None]
